FAERS Safety Report 11122446 (Version 1)
Quarter: 2015Q2

REPORT INFORMATION
  Report Type: Spontaneous
  Country: US (occurrence: US)
  Receive Date: 20150519
  Receipt Date: 20150519
  Transmission Date: 20150821
  Serious: No
  Sender: FDA-Public Use
  Company Number: US-GLAXOSMITHKLINE-US2015GSK050207

PATIENT
  Sex: Female

DRUGS (4)
  1. OPSUMIT [Concomitant]
     Active Substance: MACITENTAN
  2. VELETRI [Suspect]
     Active Substance: EPOPROSTENOL
     Indication: PULMONARY HYPERTENSION
  3. FLOLAN [Suspect]
     Active Substance: EPOPROSTENOL SODIUM
     Indication: PULMONARY HYPERTENSION
     Dosage: 5.5 NG/KG/MIN CONCENTRATION 10,000 NG/ML PUMP RATE 48 ML/DAY VIAL STRENGTH 0.5 MG
     Route: 042
     Dates: start: 20150330
  4. REVATIO [Concomitant]
     Active Substance: SILDENAFIL CITRATE

REACTIONS (6)
  - Drug intolerance [Recovering/Resolving]
  - Headache [Recovering/Resolving]
  - Venoocclusive disease [Unknown]
  - Constipation [Unknown]
  - Drug ineffective [Recovering/Resolving]
  - Dyspnoea [Unknown]
